FAERS Safety Report 13541704 (Version 5)
Quarter: 2017Q3

REPORT INFORMATION
  Report Type: Spontaneous
  Country: US (occurrence: US)
  Receive Date: 20170512
  Receipt Date: 20170710
  Transmission Date: 20171127
  Serious: Yes (Hospitalization)
  Sender: FDA-Public Use
  Company Number: US-LUNDBECK-DKLU2030535

PATIENT
  Age: 70 Year
  Sex: Male

DRUGS (4)
  1. NORTHERA [Suspect]
     Active Substance: DROXIDOPA
     Indication: AUTONOMIC NEUROPATHY
     Dosage: SCHEDULE B AND TITRATING
     Route: 048
  2. NORTHERA [Suspect]
     Active Substance: DROXIDOPA
     Indication: DIZZINESS
     Dosage: SCHEDULE B AND TITRATING
     Route: 048
     Dates: start: 20170518
  3. NORTHERA [Suspect]
     Active Substance: DROXIDOPA
     Indication: HYPOTENSION
     Dosage: SCHEDULE B AND TITRATING
     Route: 048
     Dates: start: 20170518, end: 20170519
  4. NORTHERA [Suspect]
     Active Substance: DROXIDOPA
     Route: 048
     Dates: start: 20170616

REACTIONS (12)
  - Pericardial effusion [Unknown]
  - Heart rate decreased [Unknown]
  - Peripheral swelling [Unknown]
  - Feeling drunk [Unknown]
  - Gait disturbance [Unknown]
  - Joint instability [Unknown]
  - Pleural effusion [Unknown]
  - Drug interaction [Unknown]
  - Dizziness [Unknown]
  - Nausea [Unknown]
  - Hypoacusis [Unknown]
  - Hypotension [Unknown]

NARRATIVE: CASE EVENT DATE: 20170518
